FAERS Safety Report 17797324 (Version 2)
Quarter: 2020Q3

REPORT INFORMATION
  Report Type: Report from Study
  Country: GB (occurrence: GB)
  Receive Date: 20200518
  Receipt Date: 20200811
  Transmission Date: 20201102
  Serious: Yes (Other)
  Sender: FDA-Public Use
  Company Number: GB-SAMSUNG BIOEPIS-SB-2020-16500

PATIENT
  Age: 52 Year
  Sex: Female

DRUGS (1)
  1. IMRALDI [Suspect]
     Active Substance: ADALIMUMAB
     Indication: AXIAL SPONDYLOARTHRITIS
     Route: 058
     Dates: start: 20190828

REACTIONS (5)
  - COVID-19 [Unknown]
  - Condition aggravated [Unknown]
  - Hypotension [Unknown]
  - Mobility decreased [Unknown]
  - Tachycardia [Unknown]
